FAERS Safety Report 8473210-4 (Version None)
Quarter: 2012Q2

REPORT INFORMATION
  Report Type: 
  Country: None (occurrence: None)
  Receive Date: 20120627
  Receipt Date: 20120625
  Transmission Date: 20120825
  Serious: Yes (Other)
  Sender: FDA-Public Use
  Company Number: US-ELI_LILLY_AND_COMPANY-US201110004545

PATIENT
  Sex: Male
  Weight: 109.75 kg

DRUGS (3)
  1. ANTIDEPRESSANTS [Concomitant]
     Dosage: UNK
     Dates: start: 20060401
  2. BYETTA [Suspect]
     Indication: PRODUCT USED FOR UNKNOWN INDICATION
     Dosage: UNK
     Dates: start: 20070801, end: 20100501
  3. VICODIN [Concomitant]
     Indication: PAIN
     Dosage: 750 DF, UNK
     Dates: start: 20110201

REACTIONS (2)
  - PANCREATITIS [None]
  - DIARRHOEA [None]
